FAERS Safety Report 7761202-X (Version None)
Quarter: 2011Q3

REPORT INFORMATION
  Report Type: 
  Country: None (occurrence: None)
  Receive Date: 20110920
  Receipt Date: 20110905
  Transmission Date: 20111222
  Serious: Yes (Other)
  Sender: FDA-Public Use
  Company Number: PHHY2011GB79952

PATIENT
  Age: 9 Year
  Sex: Female

DRUGS (3)
  1. CYCLOPHOSPHAMIDE [Suspect]
     Indication: WEGENER'S GRANULOMATOSIS
     Route: 048
  2. CYCLOSPORINE [Suspect]
     Indication: IMMUNOSUPPRESSION
  3. PREDNISOLONE [Suspect]
     Indication: WEGENER'S GRANULOMATOSIS
     Route: 048

REACTIONS (11)
  - BREAST CANCER [None]
  - LARYNGEAL STENOSIS [None]
  - PARONYCHIA [None]
  - URINARY TRACT INFECTION [None]
  - OSTEOPOROSIS [None]
  - HIRSUTISM [None]
  - CUSHING'S SYNDROME [None]
  - OSTEONECROSIS [None]
  - HERPES ZOSTER [None]
  - HEARING IMPAIRED [None]
  - INFERTILITY [None]
